FAERS Safety Report 5865725-X (Version None)
Quarter: 2008Q3

REPORT INFORMATION
  Report Type: 
  Country: None (occurrence: None)
  Receive Date: 20080829
  Receipt Date: 20080821
  Transmission Date: 20090109
  Serious: Yes (Other)
  Sender: FDA-Public Use
  Company Number: PHHY2008GB12790

PATIENT
  Age: 39 Year
  Sex: Male

DRUGS (3)
  1. VOLTAROL RAPID [Suspect]
     Indication: PAIN
     Dosage: 50 MG, TID
     Route: 048
     Dates: start: 20060914
  2. VOLTAROL RAPID [Suspect]
     Dosage: UNK
     Dates: start: 20070817
  3. VOLTAROL RAPID [Suspect]
     Dosage: UNK
     Dates: start: 20080225

REACTIONS (1)
  - ERECTILE DYSFUNCTION [None]
